FAERS Safety Report 5583561-9 (Version None)
Quarter: 2008Q1

REPORT INFORMATION
  Report Type: 
  Country: None (occurrence: None)
  Receive Date: 20080107
  Receipt Date: 20071227
  Transmission Date: 20080703
  Serious: Yes (Life-Threatening)
  Sender: FDA-Public Use
  Company Number: FR-GENENTECH-253668

PATIENT
  Sex: Female

DRUGS (2)
  1. AVASTIN [Suspect]
     Indication: LUNG CANCER METASTATIC
     Dosage: 800 MG, Q3W
     Route: 042
     Dates: start: 20070511, end: 20070622
  2. CAELYX [Suspect]
     Indication: DRUG USE FOR UNKNOWN INDICATION
     Dosage: 43.5 MG, UNK
     Route: 042
     Dates: start: 20070511, end: 20070622

REACTIONS (1)
  - LEUKOENCEPHALOPATHY [None]
